FAERS Safety Report 6492370-8 (Version None)
Quarter: 2009Q4

REPORT INFORMATION
  Report Type: 
  Country: None (occurrence: None)
  Receive Date: 20091214
  Receipt Date: 20091210
  Transmission Date: 20100525
  Serious: Yes (Hospitalization)
  Sender: FDA-Public Use
  Company Number: FR-SANOFI-AVENTIS-2009SA007800

PATIENT
  Age: 17 Year
  Sex: Female
  Weight: 43 kg

DRUGS (10)
  1. METRONIDAZOLE [Suspect]
     Indication: INFECTION
     Route: 042
     Dates: start: 20091113, end: 20091116
  2. BACTRIM [Suspect]
     Indication: INFECTION PROPHYLAXIS
     Route: 048
     Dates: start: 20091028, end: 20091116
  3. ROCEPHIN [Suspect]
     Indication: INFECTION
     Dates: start: 20091113
  4. PENTASA [Concomitant]
     Dates: start: 20080401, end: 20090201
  5. IMUREL [Concomitant]
     Dates: start: 20090301
  6. MESALAZINE [Concomitant]
     Dates: start: 20090301
  7. REMICADE [Concomitant]
     Dates: start: 20091029
  8. SOLUPRED [Concomitant]
     Route: 048
     Dates: start: 20091113
  9. CALCIPRAT [Concomitant]
     Route: 048
     Dates: start: 20091028
  10. LOVENOX [Suspect]
     Indication: DRUG USE FOR UNKNOWN INDICATION
     Dates: start: 20091102, end: 20091108

REACTIONS (2)
  - EYELID OEDEMA [None]
  - FACE OEDEMA [None]
